FAERS Safety Report 7668431-4 (Version None)
Quarter: 2011Q3

REPORT INFORMATION
  Report Type: 
  Country: None (occurrence: None)
  Receive Date: 20110808
  Receipt Date: 20110802
  Transmission Date: 20111222
  Serious: Yes (Disabling)
  Sender: FDA-Public Use
  Company Number: US-PFIZER INC-2011176419

PATIENT
  Sex: Female
  Weight: 84 kg

DRUGS (8)
  1. LYRICA [Suspect]
     Indication: BACK INJURY
     Dosage: 150 MG, 2X/DAY
     Route: 048
     Dates: start: 20101001
  2. LYRICA [Suspect]
     Indication: MUSCULAR WEAKNESS
  3. TOPAMAX [Concomitant]
     Indication: HEAD INJURY
     Dosage: 25 MG, 2X/DAY
     Route: 048
  4. VALIUM [Concomitant]
     Indication: MUSCLE RELAXANT THERAPY
     Dosage: 5 MG, 4X/DAY
     Route: 048
  5. CYCLOBENZAPRINE [Concomitant]
     Indication: MUSCLE RELAXANT THERAPY
     Dosage: 10 MG, 4X/DAY
     Route: 048
  6. LYRICA [Suspect]
     Indication: NECK INJURY
     Dosage: 100 MG, 2X/DAY
     Dates: start: 20100810
  7. LYRICA [Suspect]
     Indication: JOINT INJURY
  8. OXYCONTIN [Concomitant]
     Indication: PAIN
     Dosage: UNK
     Route: 048

REACTIONS (2)
  - MOBILITY DECREASED [None]
  - MUSCULAR WEAKNESS [None]
